FAERS Safety Report 9525480 (Version 2)
Quarter: 2013Q3

REPORT INFORMATION
  Report Type: Spontaneous
  Country: PE (occurrence: PE)
  Receive Date: 20130916
  Receipt Date: 20130916
  Transmission Date: 20140515
  Serious: Yes (Hospitalization)
  Sender: FDA-Public Use
  Company Number: PE-PFIZER INC-2013237878

PATIENT
  Sex: Female

DRUGS (1)
  1. EFEXOR XR [Suspect]
     Dosage: UNK
     Route: 048

REACTIONS (5)
  - Limb discomfort [Unknown]
  - Oral discomfort [Unknown]
  - Tongue injury [Unknown]
  - Dysgeusia [Unknown]
  - Food intolerance [Unknown]
